FAERS Safety Report 14847875 (Version 1)
Quarter: 2018Q2

REPORT INFORMATION
  Report Type: Spontaneous
  Country: QA (occurrence: QA)
  Receive Date: 20180504
  Receipt Date: 20180504
  Transmission Date: 20180711
  Serious: Yes (Other)
  Sender: FDA-Public Use
  Company Number: QA-IMPAX LABORATORIES, INC-2018-IPXL-01495

PATIENT
  Age: 10 Year
  Sex: Male

DRUGS (4)
  1. L-THYROXINE [Suspect]
     Active Substance: LEVOTHYROXINE
     Indication: BLOOD THYROID STIMULATING HORMONE DECREASED
     Dosage: UNK
     Route: 065
  2. HYDROCORTISONE. [Suspect]
     Active Substance: HYDROCORTISONE
     Indication: CORTISOL DEFICIENCY
     Dosage: UNK
     Route: 065
  3. PANCREX V [Suspect]
     Active Substance: PANCRELIPASE
     Indication: PANCREATIC FAILURE
     Dosage: UNK
     Route: 065
  4. L-THYROXINE [Suspect]
     Active Substance: LEVOTHYROXINE
     Indication: THYROXINE FREE DECREASED

REACTIONS (1)
  - Type 2 diabetes mellitus [Recovering/Resolving]
